FAERS Safety Report 17316736 (Version 1)
Quarter: 2020Q1

REPORT INFORMATION
  Report Type: Spontaneous
  Country: JP (occurrence: JP)
  Receive Date: 20200124
  Receipt Date: 20200124
  Transmission Date: 20200409
  Serious: Yes (Death, Life-Threatening, Other)
  Sender: FDA-Public Use
  Company Number: JP-009507513-1904JPN001145J

PATIENT
  Age: 78 Year
  Sex: Male
  Weight: 52 kg

DRUGS (4)
  1. BEZATOL SR [Concomitant]
     Active Substance: BEZAFIBRATE
     Dosage: UNK
     Route: 065
  2. ZETIA [Concomitant]
     Active Substance: EZETIMIBE
     Dosage: UNK
     Route: 065
  3. CEFAZOLIN NA [Suspect]
     Active Substance: CEFAZOLIN SODIUM
     Indication: INFECTION PROPHYLAXIS
     Dosage: UNK
     Route: 042
     Dates: start: 20190403
  4. BRIDION [Suspect]
     Active Substance: SUGAMMADEX
     Indication: NEUROMUSCULAR BLOCKADE REVERSAL
     Dosage: 100 MILLIGRAM
     Route: 042
     Dates: start: 20190403

REACTIONS (2)
  - Gastric cancer [Fatal]
  - Anaphylactic shock [Recovered/Resolved]

NARRATIVE: CASE EVENT DATE: 20190403
